FAERS Safety Report 13339942 (Version 1)
Quarter: 2017Q1

REPORT INFORMATION
  Report Type: Spontaneous
  Country: US (occurrence: US)
  Receive Date: 20170316
  Receipt Date: 20170316
  Transmission Date: 20170428
  Serious: No
  Sender: FDA-Public Use
  Company Number: US-CIPLA LTD.-2017US01451

PATIENT

DRUGS (11)
  1. FINASTERIDE. [Suspect]
     Active Substance: FINASTERIDE
     Dosage: 5 MG, QD
     Route: 065
  2. WARFARIN [Suspect]
     Active Substance: WARFARIN
     Indication: ATRIAL FIBRILLATION
     Dosage: 5 MG, QD
     Route: 065
  3. ALFUZOSIN HYDROCHLORIDE. [Suspect]
     Active Substance: ALFUZOSIN HYDROCHLORIDE
     Dosage: 10 MG, QD, EXTENDED RELEASE
     Route: 065
  4. DIGOXIN. [Suspect]
     Active Substance: DIGOXIN
     Dosage: 250 MCG, QD
     Route: 065
  5. CELECOXIB. [Suspect]
     Active Substance: CELECOXIB
     Dosage: 200 MG, QD
     Route: 065
  6. METFORMIN [Suspect]
     Active Substance: METFORMIN HYDROCHLORIDE
     Dosage: 500 MG, QD
     Route: 065
  7. HYDROCHLOROTHIAZIDE. [Suspect]
     Active Substance: HYDROCHLOROTHIAZIDE
     Dosage: 12.5 MG, QD
     Route: 065
  8. ATORVASTATIN [Suspect]
     Active Substance: ATORVASTATIN
     Dosage: 20 MG, QD
     Route: 065
  9. METOPROLOL. [Suspect]
     Active Substance: METOPROLOL
     Dosage: 50 MG, QD
     Route: 065
  10. CARTIA XT [Suspect]
     Active Substance: DILTIAZEM HYDROCHLORIDE
     Dosage: 120 MG, QD, 24HRS EXTENDED RELEASE
     Route: 065
  11. LISINOPRIL. [Suspect]
     Active Substance: LISINOPRIL
     Dosage: 10 MG, QD
     Route: 065

REACTIONS (2)
  - Product substitution issue [Unknown]
  - International normalised ratio decreased [Recovered/Resolved]
